FAERS Safety Report 18602761 (Version 1)
Quarter: 2020Q4

REPORT INFORMATION
  Report Type: Spontaneous
  Country: US (occurrence: US)
  Receive Date: 20201210
  Receipt Date: 20201210
  Transmission Date: 20210114
  Serious: No
  Sender: FDA-Public Use
  Company Number: US-PERRIGO-20US014421

PATIENT
  Age: 18 Year
  Sex: Male
  Weight: 113.38 kg

DRUGS (2)
  1. ALBUTEROL SULFATE. [Suspect]
     Active Substance: ALBUTEROL SULFATE
     Indication: ASTHMA
     Dosage: 90 TO 180 MCG, Q 4 HRS, PRN
     Route: 055
     Dates: start: 202002
  2. DRUGS FOR OBSTRUCTIVE AIRWAY DISEASES [Concomitant]
     Indication: ASTHMA
     Dosage: UNK
     Route: 055
     Dates: start: 202007

REACTIONS (2)
  - Device delivery system issue [Unknown]
  - Asthma [Unknown]

NARRATIVE: CASE EVENT DATE: 202007
